FAERS Safety Report 23084217 (Version 1)
Quarter: 2023Q4

REPORT INFORMATION
  Report Type: Spontaneous
  Country: US (occurrence: US)
  Receive Date: 20231019
  Receipt Date: 20231019
  Transmission Date: 20240109
  Serious: No
  Sender: FDA-Public Use
  Company Number: US-SANDOZ-SDZ2023US042358

PATIENT
  Sex: Female

DRUGS (2)
  1. GABAPENTIN [Suspect]
     Active Substance: GABAPENTIN
     Indication: Product used for unknown indication
     Dosage: UNK
     Route: 065
  2. KESIMPTA [Suspect]
     Active Substance: OFATUMUMAB
     Indication: Product used for unknown indication
     Dosage: UNK
     Route: 065

REACTIONS (17)
  - Muscular weakness [Unknown]
  - Brain fog [Unknown]
  - Burning sensation [Unknown]
  - Speech disorder [Unknown]
  - Tooth abscess [Unknown]
  - Infection susceptibility increased [Unknown]
  - Feeling abnormal [Unknown]
  - Condition aggravated [Unknown]
  - Therapeutic response shortened [Unknown]
  - B-lymphocyte count decreased [Unknown]
  - Gait disturbance [Recovering/Resolving]
  - Drug intolerance [Unknown]
  - Hypoaesthesia [Unknown]
  - Paraesthesia [Unknown]
  - Pruritus [Unknown]
  - Urinary tract infection [Unknown]
  - Dizziness [Unknown]
